FAERS Safety Report 7819133-2 (Version None)
Quarter: 2011Q4

REPORT INFORMATION
  Report Type: 
  Country: None (occurrence: None)
  Receive Date: 20111018
  Receipt Date: 20111007
  Transmission Date: 20120403
  Serious: Yes (Other)
  Sender: FDA-Public Use
  Company Number: PHHY2011IN85265

PATIENT
  Age: 18 Year
  Sex: Female

DRUGS (4)
  1. DEXAMETHASONE [Suspect]
     Indication: ACUTE LYMPHOCYTIC LEUKAEMIA
  2. VINCRISTINE [Suspect]
     Indication: ACUTE LYMPHOCYTIC LEUKAEMIA
  3. EPIRUBICIN [Suspect]
     Indication: ACUTE LYMPHOCYTIC LEUKAEMIA
  4. ASPARAGINASE [Suspect]
     Indication: ACUTE LYMPHOCYTIC LEUKAEMIA

REACTIONS (13)
  - ENCEPHALOPATHY [None]
  - HEPATOMEGALY [None]
  - VENOOCCLUSIVE LIVER DISEASE [None]
  - ENTEROCOCCAL INFECTION [None]
  - PLEURAL EFFUSION [None]
  - JAUNDICE [None]
  - PYREXIA [None]
  - ACUTE HEPATIC FAILURE [None]
  - WEIGHT INCREASED [None]
  - TACHYPNOEA [None]
  - ASCITES [None]
  - GALLBLADDER DISORDER [None]
  - OEDEMA PERIPHERAL [None]
